FAERS Safety Report 23539174 (Version 2)
Quarter: 2024Q1

REPORT INFORMATION
  Report Type: Spontaneous
  Country: GB (occurrence: GB)
  Receive Date: 20240219
  Receipt Date: 20240315
  Transmission Date: 20240409
  Serious: No
  Sender: FDA-Public Use
  Company Number: GB-JNJFOC-20240156428

PATIENT
  Age: 54 Year
  Sex: Male

DRUGS (1)
  1. SIMPONI [Suspect]
     Active Substance: GOLIMUMAB
     Indication: Spinal osteoarthritis
     Dosage: STRENGTH:-  50.00 MG / 0.50 ML
     Route: 058

REACTIONS (2)
  - Device leakage [Unknown]
  - Product dose omission issue [Unknown]
